FAERS Safety Report 4817658-5 (Version None)
Quarter: 2005Q3

REPORT INFORMATION
  Report Type: 
  Country: None (occurrence: None)
  Receive Date: 20050929
  Receipt Date: 20050609
  Transmission Date: 20060218
  Serious: No
  Sender: FDA-Public Use
  Company Number: 05P-163-0302853-00

PATIENT
  Age: 66 Year
  Sex: Female
  Weight: 70.3075 kg

DRUGS (11)
  1. HUMIRA [Suspect]
     Indication: RHEUMATOID ARTHRITIS
     Dosage: 40 MG, 1 IN 2 WK, SUBCUTANEOUS
     Route: 058
     Dates: start: 20050328
  2. METHOTREXATE [Concomitant]
  3. HYDROXYCHLOROQUINE PHOSPHATE [Concomitant]
  4. TEMAZEPAM [Concomitant]
  5. CITALOPRAM HYDROBROMIDE [Concomitant]
  6. TRAZODONE HCL [Concomitant]
  7. TRANZADONE [Concomitant]
  8. ESOMEPRAZOLE [Concomitant]
  9. RISEDRONATE SODIUM [Concomitant]
  10. FOLIC ACID [Concomitant]
  11. PREDNISONE [Concomitant]

REACTIONS (1)
  - DEPRESSION [None]
